FAERS Safety Report 6544524-X (Version None)
Quarter: 2010Q1

REPORT INFORMATION
  Report Type: 
  Country: None (occurrence: None)
  Receive Date: 20100115
  Receipt Date: 20091225
  Transmission Date: 20100710
  Serious: Yes (Hospitalization)
  Sender: FDA-Public Use
  Company Number: 230206J09BRA

PATIENT
  Sex: Male

DRUGS (6)
  1. REBIF [Suspect]
     Indication: RELAPSING-REMITTING MULTIPLE SCLEROSIS
     Dosage: 44 MCG, 3 IN 1 WEEKS
     Dates: start: 20040201
  2. MANTIDAM (MANTADAN (AMANTADINE HYDROCHLORIDE)) [Concomitant]
  3. ACETAMINOPHEN [Concomitant]
  4. MANIPULATED FORMULATION WITH GARCINIA (GARCINIA CAMBOGIA) [Concomitant]
  5. MANIPULATED FORMULATION WITH PASSIFLORA (PASSIFLORA INCARNATA) [Concomitant]
  6. MANIPULATED FORMULATION WITH CARALLUMA FIMBRIATA (PLANT ALKALOIDS AND [Concomitant]

REACTIONS (4)
  - ASTHENIA [None]
  - DIARRHOEA [None]
  - INFECTION [None]
  - URINARY TRACT INFECTION [None]
